FAERS Safety Report 15828622 (Version 1)
Quarter: 2019Q1

REPORT INFORMATION
  Report Type: Spontaneous
  Country: US (occurrence: US)
  Receive Date: 20190115
  Receipt Date: 20190115
  Transmission Date: 20190417
  Serious: No
  Sender: FDA-Public Use
  Company Number: US-009507513-1901USA005153

PATIENT
  Sex: Female

DRUGS (1)
  1. NEXPLANON [Suspect]
     Active Substance: ETONOGESTREL
     Dosage: 3 YEAR IMPLANT/ IMPLANT IN LEFT ARM
     Route: 059
     Dates: start: 2016

REACTIONS (2)
  - Incorrect product administration duration [Unknown]
  - No adverse event [Unknown]

NARRATIVE: CASE EVENT DATE: 20190107
